FAERS Safety Report 6158104-1 (Version None)
Quarter: 2009Q2

REPORT INFORMATION
  Report Type: 
  Country: None (occurrence: None)
  Receive Date: 20090417
  Receipt Date: 20090414
  Transmission Date: 20091009
  Serious: No
  Sender: FDA-Public Use
  Company Number: PHEH2009US03663

PATIENT
  Sex: Female

DRUGS (2)
  1. TASIGNA [Suspect]
  2. SPRYCEL [Suspect]

REACTIONS (1)
  - HEADACHE [None]
